FAERS Safety Report 12838558 (Version 2)
Quarter: 2017Q1

REPORT INFORMATION
  Report Type: Spontaneous
  Country: US (occurrence: US)
  Receive Date: 20161012
  Receipt Date: 20170205
  Transmission Date: 20170428
  Serious: No
  Sender: FDA-Public Use
  Company Number: US-LUNDBECK-DKLU2020492

PATIENT
  Sex: Male

DRUGS (3)
  1. NORTHERA [Suspect]
     Active Substance: DROXIDOPA
     Indication: PRODUCT USED FOR UNKNOWN INDICATION
     Route: 065
  2. NORTHERA [Suspect]
     Active Substance: DROXIDOPA
     Route: 065
  3. NORTHERA [Suspect]
     Active Substance: DROXIDOPA
     Dosage: OPTION C
     Route: 065

REACTIONS (7)
  - Nausea [Unknown]
  - Orthostatic hypotension [Recovering/Resolving]
  - Diarrhoea [Unknown]
  - Drug intolerance [Unknown]
  - Dizziness [Unknown]
  - Asthenia [Unknown]
  - Vomiting [Unknown]
